FAERS Safety Report 14690073 (Version 1)
Quarter: 2018Q1

REPORT INFORMATION
  Report Type: Spontaneous
  Country: ES (occurrence: ES)
  Receive Date: 20180328
  Receipt Date: 20180328
  Transmission Date: 20180509
  Serious: Yes (Other)
  Sender: FDA-Public Use
  Company Number: ES-TEVA-2018-ES-871869

PATIENT
  Age: 35 Year
  Sex: Female
  Weight: 45 kg

DRUGS (4)
  1. MIRTAZAPINE. [Suspect]
     Active Substance: MIRTAZAPINE
     Indication: INSOMNIA
     Route: 048
  2. AMOXICILLIN ACID CLAVULANICO SALA 2,000 MG / 200 MG POWDER FOR SOLUTIO [Suspect]
     Active Substance: AMOXICILLIN\CLAVULANIC ACID
     Route: 042
  3. FLUOXETINA (2331A) [Concomitant]
     Indication: DEPRESSION
     Route: 048
  4. DIAZEPAM (730A) [Concomitant]
     Active Substance: DIAZEPAM

REACTIONS (1)
  - Hepatitis cholestatic [Recovering/Resolving]
